FAERS Safety Report 6473351-7 (Version None)
Quarter: 2009Q4

REPORT INFORMATION
  Report Type: 
  Country: None (occurrence: None)
  Receive Date: 20091204
  Receipt Date: 20080627
  Transmission Date: 20100525
  Serious: Yes (Hospitalization)
  Sender: FDA-Public Use
  Company Number: DE-ELI_LILLY_AND_COMPANY-DE200806006171

PATIENT
  Sex: Male
  Weight: 67 kg

DRUGS (15)
  1. ZYPREXA [Suspect]
     Indication: DELUSIONAL DISORDER, PERSECUTORY TYPE
     Dosage: UNK, 2/D
     Route: 048
     Dates: start: 20061212, end: 20070605
  2. ZYPREXA [Suspect]
     Dosage: 33.2 MG, DAILY (1/D)
     Route: 048
     Dates: start: 20070606, end: 20070722
  3. CLOZAPINE [Concomitant]
     Indication: SCHIZOPHRENIA, PARANOID TYPE
     Dosage: 247 MG, DAILY (1/D)
     Route: 048
     Dates: start: 20070711, end: 20071031
  4. DIAZEPAM [Concomitant]
     Indication: SCHIZOPHRENIA, PARANOID TYPE
     Route: 048
     Dates: start: 20060801, end: 20060901
  5. DIAZEPAM [Concomitant]
     Dosage: 36.4 MG, DAILY (1/D)
     Route: 048
     Dates: start: 20070606
  6. LORAZEPAM [Concomitant]
     Indication: DELUSIONAL DISORDER, PERSECUTORY TYPE
     Dosage: UNK, 2/D
     Route: 048
     Dates: start: 20060801, end: 20060801
  7. LORAZEPAM [Concomitant]
     Dosage: 5.5 MG, DAILY (1/D)
     Route: 048
     Dates: start: 20070612, end: 20070613
  8. TAXILAN [Concomitant]
     Indication: DELUSIONAL DISORDER, PERSECUTORY TYPE
     Dosage: 25 MG, DAILY (1/D)
     Route: 048
     Dates: start: 20070606, end: 20070606
  9. TAXILAN [Concomitant]
     Dosage: 150 MG, DAILY (1/D)
     Route: 048
     Dates: start: 20070608, end: 20080610
  10. SEROQUEL [Concomitant]
     Indication: DELUSIONAL DISORDER, PERSECUTORY TYPE
     Dosage: 50 MG, DAILY (1/D)
     Route: 048
     Dates: start: 20070609, end: 20070609
  11. LACTULOSE [Concomitant]
     Indication: DELUSIONAL DISORDER, PERSECUTORY TYPE
     Dosage: 29 ML, DAILY (1/D)
     Route: 048
     Dates: start: 20070623, end: 20070704
  12. LARYNGSAN [Concomitant]
     Dosage: 8 GTT, 4/D
     Route: 048
     Dates: start: 20061101, end: 20070606
  13. ASPIRIN C [Concomitant]
     Dosage: 1 D/F, DAILY (1/D)
     Dates: start: 19980101, end: 20070101
  14. AKINETON [Concomitant]
     Dosage: UNK, 2/D
     Route: 048
     Dates: start: 20061212, end: 20070605
  15. ATOSIL [Concomitant]
     Dosage: UNK, 2/D
     Route: 048
     Dates: start: 20061212, end: 20070605

REACTIONS (3)
  - HEPATITIS ACUTE [None]
  - HOSPITALISATION [None]
  - OVERDOSE [None]
